FAERS Safety Report 9415763 (Version 2)
Quarter: 2013Q3

REPORT INFORMATION
  Report Type: Spontaneous
  Country: IL (occurrence: IL)
  Receive Date: 20130724
  Receipt Date: 20130731
  Transmission Date: 20140515
  Serious: Yes (Hospitalization, Other)
  Sender: FDA-Public Use
  Company Number: IL-AMGEN-ISRSP2013051226

PATIENT
  Age: 81 Year
  Sex: Female

DRUGS (3)
  1. NEULASTIM [Suspect]
     Indication: PROPHYLAXIS
     Dosage: UNK
     Route: 065
  2. TAXOL [Suspect]
     Indication: BREAST CANCER
     Dosage: UNK
     Route: 065
  3. CARBOPLATIN [Suspect]
     Indication: BREAST CANCER
     Dosage: UNK
     Route: 065

REACTIONS (3)
  - Neutropenia [Unknown]
  - Pancytopenia [Recovered/Resolved]
  - Urinary tract infection [Recovered/Resolved]
